FAERS Safety Report 14799729 (Version 1)
Quarter: 2018Q2

REPORT INFORMATION
  Report Type: Spontaneous
  Country: JP (occurrence: JP)
  Receive Date: 20180424
  Receipt Date: 20180424
  Transmission Date: 20180711
  Serious: Yes (Other)
  Sender: FDA-Public Use
  Company Number: JP-NATCO PHARMA-2018NAT00115

PATIENT
  Age: 67 Year
  Sex: Male
  Weight: 49.9 kg

DRUGS (7)
  1. PREDNISOLONE. [Concomitant]
     Active Substance: PREDNISOLONE
     Dosage: 2.5 MG, UNK
     Route: 048
  2. NIVOLUMAB [Suspect]
     Active Substance: NIVOLUMAB
     Indication: NON-SMALL CELL LUNG CANCER STAGE IV
     Dosage: 3 MG/KG, EVERY 2 WEEKS
     Route: 065
     Dates: start: 201604
  3. PREDNISOLONE. [Concomitant]
     Active Substance: PREDNISOLONE
     Indication: FATIGUE
     Dosage: 10 MG, 1X/DAY
     Route: 048
     Dates: start: 201607
  4. PREDNISOLONE. [Concomitant]
     Active Substance: PREDNISOLONE
     Indication: DECREASED APPETITE
     Dosage: 5 MG, 1X/DAY
     Route: 048
  5. ASPIRIN. [Concomitant]
     Active Substance: ASPIRIN
     Dosage: 100 UNK, UNK
     Route: 065
  6. LANSOPRAZOLE. [Suspect]
     Active Substance: LANSOPRAZOLE
     Dosage: 15 MG, 1X/DAY
     Route: 065
  7. INDACATEROL/GLYCOPYRRONIUM [Concomitant]
     Dosage: UNK, 1X/DAY
     Route: 065

REACTIONS (2)
  - Drug interaction [Recovered/Resolved]
  - Tubulointerstitial nephritis [Recovered/Resolved]

NARRATIVE: CASE EVENT DATE: 201611
